FAERS Safety Report 8208030-9 (Version None)
Quarter: 2012Q1

REPORT INFORMATION
  Report Type: 
  Country: None (occurrence: None)
  Receive Date: 20120314
  Receipt Date: 20120312
  Transmission Date: 20120608
  Serious: Yes (Life-Threatening)
  Sender: FDA-Public Use
  Company Number: BR-B.I. PHARMACEUTICALS,INC./RIDGEFIELD-2012-BR-00223BR

PATIENT
  Sex: Female

DRUGS (2)
  1. ATROVENT [Suspect]
     Indication: ABDOMINAL PAIN
     Dosage: 0.5 MG
     Route: 048
     Dates: start: 20120312
  2. BEROTEC [Suspect]
     Indication: PNEUMONIA
     Dosage: 10 MG
     Route: 055
     Dates: start: 20080101, end: 20080101

REACTIONS (3)
  - CARDIAC ARREST [None]
  - BRONCHIAL OBSTRUCTION [None]
  - DRUG ADMINISTRATION ERROR [None]
